FAERS Safety Report 9208061 (Version 1)
Quarter: 2013Q2

REPORT INFORMATION
  Report Type: Spontaneous
  Country: US (occurrence: US)
  Receive Date: 20130403
  Receipt Date: 20130403
  Transmission Date: 20140414
  Serious: Yes (Death)
  Sender: FDA-Public Use
  Company Number: US-TEVA-395941USA

PATIENT
  Age: 65 Year
  Sex: Female

DRUGS (3)
  1. TREANDA [Suspect]
     Indication: NON-HODGKIN^S LYMPHOMA
     Dosage: DAYS 2 AND 3
     Route: 042
  2. RITUXIMAB [Suspect]
     Indication: NON-HODGKIN^S LYMPHOMA
  3. GABAPENTIN [Concomitant]

REACTIONS (1)
  - Paralysis [Fatal]
